FAERS Safety Report 4521889-1 (Version None)
Quarter: 2004Q4

REPORT INFORMATION
  Report Type: 
  Country: None (occurrence: None)
  Receive Date: 20041207
  Receipt Date: 20041207
  Transmission Date: 20050328
  Serious: Yes (Hospitalization)
  Sender: FDA-Public Use
  Company Number: None

PATIENT
  Age: 49 Year
  Sex: Female
  Weight: 63.05 kg

DRUGS (7)
  1. AVASTIN [Suspect]
     Indication: COLON CANCER METASTATIC
     Dosage: 318 MG IV Q2WKS
     Route: 042
     Dates: start: 20040920, end: 20041004
  2. OXALIPLATIN [Suspect]
     Indication: COLON CANCER METASTATIC
     Dosage: 168 MG IV Q2WKS
     Route: 042
     Dates: start: 20040920, end: 20041206
  3. FLUOROURACIL [Suspect]
     Indication: COLON CANCER METASTATIC
     Dosage: SEE IMAGE
     Route: 042
     Dates: start: 20040920, end: 20041206
  4. PHENERGAN [Concomitant]
  5. POTASSIUM [Concomitant]
  6. AMBIEN [Concomitant]
  7. LEVSIN PB [Concomitant]

REACTIONS (4)
  - DYSPNOEA [None]
  - DYSPNOEA EXERTIONAL [None]
  - PLEURAL EFFUSION [None]
  - WEIGHT INCREASED [None]
